FAERS Safety Report 23088736 (Version 1)
Quarter: 2023Q4

REPORT INFORMATION
  Report Type: Spontaneous
  Country: IN (occurrence: IN)
  Receive Date: 20231020
  Receipt Date: 20231020
  Transmission Date: 20240110
  Serious: Yes (Hospitalization, Other)
  Sender: FDA-Public Use
  Company Number: IN-QUAGEN-2023QUALIT00284

PATIENT
  Age: 39 Year
  Sex: Male

DRUGS (15)
  1. VALPROIC ACID [Suspect]
     Active Substance: VALPROIC ACID
     Indication: Schizophrenia
     Route: 065
  2. VALPROIC ACID [Suspect]
     Active Substance: VALPROIC ACID
     Indication: Hypothyroidism
  3. VALPROIC ACID [Suspect]
     Active Substance: VALPROIC ACID
     Indication: Ankylosing spondylitis
  4. MEROPENEM [Suspect]
     Active Substance: MEROPENEM
     Indication: Antibiotic therapy
     Route: 065
  5. LEVOTHYROXINE [Concomitant]
     Active Substance: LEVOTHYROXINE
     Indication: Ankylosing spondylitis
     Dosage: 100 ?G
     Route: 065
  6. LEVOTHYROXINE [Concomitant]
     Active Substance: LEVOTHYROXINE
     Indication: Schizophrenia
  7. LEVOTHYROXINE [Concomitant]
     Active Substance: LEVOTHYROXINE
     Indication: Hypothyroidism
  8. CLOZAPINE [Concomitant]
     Active Substance: CLOZAPINE
     Indication: Ankylosing spondylitis
     Route: 065
  9. CLOZAPINE [Concomitant]
     Active Substance: CLOZAPINE
     Indication: Schizophrenia
  10. CLOZAPINE [Concomitant]
     Active Substance: CLOZAPINE
     Indication: Hypothyroidism
  11. Etorcoxib [Concomitant]
     Indication: Ankylosing spondylitis
     Route: 065
  12. Etorcoxib [Concomitant]
     Indication: Schizophrenia
  13. Etorcoxib [Concomitant]
     Indication: Hypothyroidism
  14. FOSPHENYTOIN [Concomitant]
     Active Substance: FOSPHENYTOIN
     Indication: Seizure
     Dosage: OVER A PERIOD OF  2-3 HOURS
     Route: 042
  15. FOSPHENYTOIN [Concomitant]
     Active Substance: FOSPHENYTOIN
     Route: 042

REACTIONS (3)
  - Status epilepticus [Recovered/Resolved]
  - Drug interaction [Unknown]
  - Product use in unapproved indication [Unknown]
